FAERS Safety Report 7932800-5 (Version None)
Quarter: 2011Q4

REPORT INFORMATION
  Report Type: 
  Country: None (occurrence: None)
  Receive Date: 20111122
  Receipt Date: 20111120
  Transmission Date: 20120403
  Serious: Yes (Other)
  Sender: FDA-Public Use
  Company Number: US-PFIZER INC-2011283803

PATIENT
  Sex: Male

DRUGS (2)
  1. CHANTIX [Suspect]
     Indication: SMOKING CESSATION THERAPY
     Dosage: UNK
  2. CHANTIX [Suspect]
     Dosage: 1 MG, 2X/DAY

REACTIONS (9)
  - MYOCARDIAL INFARCTION [None]
  - DYSPNOEA [None]
  - MUSCLE SPASMS [None]
  - RASH [None]
  - CHEST PAIN [None]
  - MALAISE [None]
  - DRY MOUTH [None]
  - PALPITATIONS [None]
  - CHEST DISCOMFORT [None]
